FAERS Safety Report 26165534 (Version 1)
Quarter: 2025Q4

REPORT INFORMATION
  Report Type: Spontaneous
  Country: GB (occurrence: GB)
  Receive Date: 20251216
  Receipt Date: 20251216
  Transmission Date: 20260118
  Serious: Yes (Other)
  Sender: VERTEX
  Company Number: GB-VERTEX PHARMACEUTICALS-2025-021110

PATIENT
  Age: 22 Year
  Sex: Female

DRUGS (2)
  1. ELEXACAFTOR\IVACAFTOR\TEZACAFTOR [Suspect]
     Active Substance: ELEXACAFTOR\IVACAFTOR\TEZACAFTOR
     Indication: Cystic fibrosis
     Dosage: UNKNOWN DOSAGE REGIMEN
     Route: 061
  2. ELEXACAFTOR\IVACAFTOR\TEZACAFTOR [Suspect]
     Active Substance: ELEXACAFTOR\IVACAFTOR\TEZACAFTOR
     Dosage: HALF DOSE (TWICE A WEEK)
     Route: 061

REACTIONS (13)
  - Self-injurious ideation [Unknown]
  - Suicidal ideation [Unknown]
  - Anxiety [Unknown]
  - Depression [Unknown]
  - Body dysmorphic disorder [Unknown]
  - Weight increased [Unknown]
  - Insomnia [Unknown]
  - Feeling abnormal [Unknown]
  - Increased appetite [Unknown]
  - Brain fog [Unknown]
  - Nervous system disorder [Unknown]
  - Post-traumatic stress disorder [Unknown]
  - Hormone level abnormal [Unknown]
